FAERS Safety Report 5301683-4 (Version None)
Quarter: 2007Q1

REPORT INFORMATION
  Report Type: 
  Country: None (occurrence: None)
  Receive Date: 20070201
  Receipt Date: 20061129
  Transmission Date: 20070707
  Serious: No
  Sender: FDA-Public Use
  Company Number: 2006PV026076

PATIENT
  Age: 73 Year
  Sex: Female
  Weight: 69.4003 kg

DRUGS (5)
  1. BYETTA [Suspect]
     Indication: DIABETES MELLITUS NON-INSULIN-DEPENDENT
     Dosage: SEE IMAGE
     Route: 058
     Dates: start: 20060101, end: 20061126
  2. BYETTA [Suspect]
     Indication: DIABETES MELLITUS NON-INSULIN-DEPENDENT
     Dosage: SEE IMAGE
     Route: 058
     Dates: start: 20061127
  3. GLIPIZIDE [Concomitant]
  4. ACTOS [Concomitant]
  5. CLOPIDOGREL [Concomitant]

REACTIONS (5)
  - BLOOD GLUCOSE INCREASED [None]
  - CORONARY ARTERY OCCLUSION [None]
  - DYSPNOEA [None]
  - INJECTION SITE BRUISING [None]
  - WEIGHT DECREASED [None]
